FAERS Safety Report 6818542-8 (Version None)
Quarter: 2010Q3

REPORT INFORMATION
  Report Type: 
  Country: None (occurrence: None)
  Receive Date: 20100706
  Receipt Date: 20100629
  Transmission Date: 20110219
  Serious: Yes (Death)
  Sender: FDA-Public Use
  Company Number: US-GILEAD-2010-0030155

PATIENT
  Sex: Female
  Weight: 46.036 kg

DRUGS (11)
  1. LETAIRIS [Suspect]
     Indication: PULMONARY ARTERIAL HYPERTENSION
     Route: 048
     Dates: start: 20091029
  2. TYVASO [Concomitant]
     Indication: PULMONARY ARTERIAL HYPERTENSION
  3. HYDROCHLOROTHIAZIDE [Concomitant]
  4. PREDNISONE [Concomitant]
  5. ADVAIR DISKUS 100/50 [Concomitant]
  6. ASTELIN [Concomitant]
  7. XOPENEX [Concomitant]
  8. ZYRTEC-D 12 HOUR [Concomitant]
  9. PATANOL [Concomitant]
  10. FLAX SEED [Concomitant]
  11. LOVAZA [Concomitant]

REACTIONS (1)
  - DEATH [None]
